FAERS Safety Report 21400810 (Version 7)
Quarter: 2022Q4

REPORT INFORMATION
  Report Type: Report from Study
  Country: CO (occurrence: CO)
  Receive Date: 20221003
  Receipt Date: 20221208
  Transmission Date: 20230113
  Serious: Yes (Life-Threatening, Hospitalization)
  Sender: FDA-Public Use
  Company Number: CO-NOVARTISPH-NVSC2022CO222038

PATIENT
  Sex: Male

DRUGS (3)
  1. ELTROMBOPAG OLAMINE [Suspect]
     Active Substance: ELTROMBOPAG OLAMINE
     Indication: Aplastic anaemia
     Dosage: UNK UNK, QD
     Route: 048
  2. ELTROMBOPAG OLAMINE [Suspect]
     Active Substance: ELTROMBOPAG OLAMINE
     Dosage: 150 MG, QD
     Route: 048
  3. ELTROMBOPAG OLAMINE [Suspect]
     Active Substance: ELTROMBOPAG OLAMINE
     Dosage: UNK
     Route: 048

REACTIONS (11)
  - General physical health deterioration [Unknown]
  - Condition aggravated [Unknown]
  - Generalised oedema [Unknown]
  - Fungal infection [Unknown]
  - Bacterial infection [Unknown]
  - Discouragement [Unknown]
  - Platelet count decreased [Unknown]
  - Insomnia [Unknown]
  - Pyrexia [Unknown]
  - Depressed mood [Unknown]
  - Product dose omission issue [Unknown]
